FAERS Safety Report 7407683-2 (Version None)
Quarter: 2011Q2

REPORT INFORMATION
  Report Type: 
  Country: None (occurrence: None)
  Receive Date: 20110405
  Receipt Date: 20110328
  Transmission Date: 20111010
  Serious: Yes (Other)
  Sender: FDA-Public Use
  Company Number: GB-ACCORD-008610

PATIENT
  Age: 60 Year
  Sex: Male

DRUGS (6)
  1. ACETAMINOPHEN AND CODEINE PHOSPHATE [Concomitant]
  2. KETOPROFEN [Concomitant]
  3. ATORVASTATIN (ATORVASTATI N) [Concomitant]
  4. OMEPRAZOLE [Concomitant]
  5. SIMVASTATIN [Suspect]
     Indication: PRODUCT USED FOR UNKNOWN INDICATION
     Dates: start: 20110316
  6. ACETAMINOPHEN [Concomitant]

REACTIONS (1)
  - MOUTH ULCERATION [None]
